FAERS Safety Report 24723245 (Version 1)
Quarter: 2024Q4

REPORT INFORMATION
  Report Type: Spontaneous
  Country: CN (occurrence: CN)
  Receive Date: 20241211
  Receipt Date: 20241211
  Transmission Date: 20250115
  Serious: Yes (Other)
  Sender: PFIZER
  Company Number: CN-PFIZER INC-202400319494

PATIENT
  Age: 18 Year
  Sex: Female

DRUGS (3)
  1. CYTARABINE [Suspect]
     Active Substance: CYTARABINE
     Indication: Acute myeloid leukaemia
     Dosage: 100 MG, EVERY 12 HOURS D1-4
  2. CYTARABINE [Suspect]
     Active Substance: CYTARABINE
     Dosage: 2 G, EVERY 12 HOURS D5-7
  3. DAUNORUBICIN [Suspect]
     Active Substance: DAUNORUBICIN
     Indication: Acute myeloid leukaemia
     Dosage: 120 MG D1-3

REACTIONS (6)
  - Granulocyte count decreased [Unknown]
  - Pyrexia [Unknown]
  - Temperature intolerance [Unknown]
  - Oropharyngeal pain [Unknown]
  - Headache [Unknown]
  - Infection [Unknown]

NARRATIVE: CASE EVENT DATE: 20241120
